FAERS Safety Report 6298956-8 (Version None)
Quarter: 2009Q3

REPORT INFORMATION
  Report Type: 
  Country: None (occurrence: None)
  Receive Date: 20090804
  Receipt Date: 20090724
  Transmission Date: 20100115
  Serious: Yes (Hospitalization, Other)
  Sender: FDA-Public Use
  Company Number: 84519

PATIENT
  Age: 33 Year
  Sex: Male

DRUGS (1)
  1. BUPRENORPHINE HCL INJ. [Suspect]
     Dosage: 3-5 8MG TABLETS

REACTIONS (7)
  - CHOLESTASIS [None]
  - CHRONIC HEPATITIS [None]
  - COAGULATION FACTOR V LEVEL ABNORMAL [None]
  - DRUG ABUSE [None]
  - HEPATIC NECROSIS [None]
  - HEPATIC STEATOSIS [None]
  - LIVER INJURY [None]
